FAERS Safety Report 25546681 (Version 1)
Quarter: 2025Q3

REPORT INFORMATION
  Report Type: Spontaneous
  Country: US (occurrence: US)
  Receive Date: 20250714
  Receipt Date: 20250714
  Transmission Date: 20251020
  Serious: Yes (Disabling)
  Sender: APOTEX
  Company Number: US-APOTEX-2025AP009592

PATIENT
  Age: 33 Year

DRUGS (3)
  1. BUTORPHANOL [Suspect]
     Active Substance: BUTORPHANOL
     Indication: Product used for unknown indication
     Dosage: 1 DOSAGE FORM, Q.H.S.
     Route: 065
     Dates: start: 20240421, end: 20240922
  2. XOLAIR [Concomitant]
     Active Substance: OMALIZUMAB
     Indication: Product used for unknown indication
     Route: 065
  3. TRAZODONE [Concomitant]
     Active Substance: TRAZODONE HYDROCHLORIDE
     Indication: Product used for unknown indication
     Route: 065

REACTIONS (1)
  - Postural orthostatic tachycardia syndrome [Not Recovered/Not Resolved]

NARRATIVE: CASE EVENT DATE: 20240101
